FAERS Safety Report 19979009 (Version 1)
Quarter: 2021Q4

REPORT INFORMATION
  Report Type: Spontaneous
  Country: US (occurrence: US)
  Receive Date: 20211020
  Receipt Date: 20211020
  Transmission Date: 20220304
  Serious: No
  Sender: FDA-Public Use
  Company Number: US-ELI_LILLY_AND_COMPANY-US202109008353

PATIENT
  Sex: Male

DRUGS (1)
  1. HUMULIN R [Suspect]
     Active Substance: INSULIN HUMAN
     Indication: Type 1 diabetes mellitus
     Dosage: UNK, PRN (VIA SLIDING SCALE)
     Route: 058
     Dates: start: 202108

REACTIONS (4)
  - Blood glucose increased [Recovered/Resolved]
  - Injection site pain [Recovered/Resolved]
  - Blood glucose decreased [Recovered/Resolved]
  - Incorrect product administration duration [Unknown]
